FAERS Safety Report 23365337 (Version 1)
Quarter: 2024Q1

REPORT INFORMATION
  Report Type: Report from Study
  Country: US (occurrence: US)
  Receive Date: 20240104
  Receipt Date: 20240104
  Transmission Date: 20240410
  Serious: Yes (Life-Threatening, Hospitalization)
  Sender: FDA-Public Use
  Company Number: US-TEVA-VS-3138673

PATIENT
  Age: 63 Year
  Weight: 110.7 kg

DRUGS (28)
  1. LISINOPRIL [Suspect]
     Active Substance: LISINOPRIL
     Indication: Product used for unknown indication
     Route: 065
  2. TOPIRAMATE [Concomitant]
     Active Substance: TOPIRAMATE
  3. IMODIUM A-D [Concomitant]
     Active Substance: LOPERAMIDE HYDROCHLORIDE
  4. POTASSIUM CHLORIDE [Concomitant]
     Active Substance: POTASSIUM CHLORIDE
  5. ZOLOFT [Concomitant]
     Active Substance: SERTRALINE HYDROCHLORIDE
  6. EZETIMIBE [Concomitant]
     Active Substance: EZETIMIBE
  7. SINGULAIR [Concomitant]
     Active Substance: MONTELUKAST SODIUM
  8. PANTOPRAZOLE SODIUM [Concomitant]
     Active Substance: PANTOPRAZOLE SODIUM
  9. LASIX [Concomitant]
     Active Substance: FUROSEMIDE
  10. UBRELVY [Concomitant]
     Active Substance: UBROGEPANT
  11. VALIUM [Concomitant]
     Active Substance: DIAZEPAM
  12. GABAPENTIN [Concomitant]
     Active Substance: GABAPENTIN
  13. VITAMIN D2 [Concomitant]
     Active Substance: ERGOCALCIFEROL
  14. LIPITOR [Concomitant]
     Active Substance: ATORVASTATIN CALCIUM
  15. CLARAVIS [Concomitant]
     Active Substance: ISOTRETINOIN
  16. COMBIVENT RESPIMAT [Concomitant]
     Active Substance: ALBUTEROL SULFATE\IPRATROPIUM BROMIDE
  17. IBUPROFEN [Concomitant]
     Active Substance: IBUPROFEN
  18. FERROUS SULFATE [Concomitant]
     Active Substance: FERROUS SULFATE
  19. PROAIR DIGIHALER [Concomitant]
     Active Substance: ALBUTEROL SULFATE
  20. ZYRTEC [Concomitant]
     Active Substance: CETIRIZINE HYDROCHLORIDE
  21. CYCLOBENZAPRINE HYDROCHLORIDE [Concomitant]
     Active Substance: CYCLOBENZAPRINE HYDROCHLORIDE
  22. ASPIRIN [Concomitant]
     Active Substance: ASPIRIN
  23. SYMBICORT [Concomitant]
     Active Substance: BUDESONIDE\FORMOTEROL FUMARATE DIHYDRATE
  24. EMGALITY [Concomitant]
     Active Substance: GALCANEZUMAB-GNLM
  25. TYVASO [Suspect]
     Active Substance: TREPROSTINIL
     Indication: Pulmonary arterial hypertension
     Dosage: DOSAGE FORM: INHALATION GAS
     Route: 055
     Dates: start: 20220408
  26. TYVASO [Suspect]
     Active Substance: TREPROSTINIL
     Indication: Pulmonary arterial hypertension
     Dosage: DOSAGE FORM: INHALATION GAS
     Route: 055
  27. TRULICITY [Concomitant]
     Active Substance: DULAGLUTIDE
  28. GEMFIBROZIL [Concomitant]
     Active Substance: GEMFIBROZIL

REACTIONS (1)
  - Drug hypersensitivity [Unknown]
